FAERS Safety Report 5261083-2 (Version None)
Quarter: 2007Q1

REPORT INFORMATION
  Report Type: 
  Country: None (occurrence: None)
  Receive Date: 20070309
  Receipt Date: 20070228
  Transmission Date: 20070707
  Serious: No
  Sender: FDA-Public Use
  Company Number: 2006UW07899

PATIENT
  Sex: Female
  Weight: 95.9 kg

DRUGS (6)
  1. SEROQUEL [Suspect]
     Indication: DEPRESSION
     Route: 048
     Dates: start: 20020101, end: 20050101
  2. SEROQUEL [Suspect]
     Indication: ANXIETY
     Route: 048
     Dates: start: 20020101, end: 20050101
  3. GEODON [Concomitant]
     Dates: start: 20060101
  4. HALDOL [Concomitant]
  5. RISPERDAL [Concomitant]
     Dates: start: 20050101
  6. KLONOPIN [Concomitant]

REACTIONS (1)
  - DIABETES MELLITUS [None]
